FAERS Safety Report 14155490 (Version 1)
Quarter: 2017Q4

REPORT INFORMATION
  Report Type: Report from Study
  Country: MX (occurrence: MX)
  Receive Date: 20171103
  Receipt Date: 20171103
  Transmission Date: 20180321
  Serious: Yes (Other)
  Sender: FDA-Public Use
  Company Number: PHHY2017MX159576

PATIENT
  Sex: Female

DRUGS (1)
  1. DUOTRAV APS [Suspect]
     Active Substance: TIMOLOL MALEATE\TRAVOPROST
     Indication: GLAUCOMA
     Dosage: 1 DF, QD IN EACH EYE (0.04 MG/5 MG 2.5 ML))
     Route: 065

REACTIONS (4)
  - Dementia Alzheimer^s type [Unknown]
  - Feeding disorder [Unknown]
  - Gait disturbance [Unknown]
  - Hypokinesia [Unknown]
